FAERS Safety Report 10790636 (Version 1)
Quarter: 2015Q1

REPORT INFORMATION
  Report Type: Report from Study
  Country: US (occurrence: US)
  Receive Date: 20150212
  Receipt Date: 20150212
  Transmission Date: 20150721
  Serious: Yes (Hospitalization, Other)
  Sender: FDA-Public Use
  Company Number: US-GLAXOSMITHKLINE-A0968472D

PATIENT
  Age: 75 Year
  Sex: Female
  Weight: 98.6 kg

DRUGS (4)
  1. TRAMETINIB TABLET [Suspect]
     Active Substance: TRAMETINIB
     Indication: METASTATIC MALIGNANT MELANOMA
     Route: 048
     Dates: start: 20120206
  2. DABRAFENIB CAPSULE [Suspect]
     Active Substance: DABRAFENIB
     Indication: METASTATIC MALIGNANT MELANOMA
     Route: 048
     Dates: start: 20120206
  3. COUMADIN [Concomitant]
     Active Substance: WARFARIN SODIUM
  4. FRAGMIN [Concomitant]
     Active Substance: DALTEPARIN SODIUM

REACTIONS (1)
  - Pulmonary embolism [Recovered/Resolved with Sequelae]

NARRATIVE: CASE EVENT DATE: 20120618
